FAERS Safety Report 25785183 (Version 1)
Quarter: 2025Q3

REPORT INFORMATION
  Report Type: Spontaneous
  Country: EU (occurrence: EU)
  Receive Date: 20250910
  Receipt Date: 20250910
  Transmission Date: 20251021
  Serious: Yes (Congenital Anomaly, Other)
  Sender: AUROBINDO
  Company Number: EU-LRB-01080659

PATIENT
  Age: 1 Hour
  Sex: Female
  Weight: 4 kg

DRUGS (1)
  1. LAMOTRIGINE [Suspect]
     Active Substance: LAMOTRIGINE
     Indication: Epilepsy
     Dosage: 150 MILLIGRAM, TWO TIMES A DAY
     Route: 064
     Dates: start: 20000103

REACTIONS (2)
  - Cataract [Not Recovered/Not Resolved]
  - Maternal exposure during pregnancy [Unknown]
